FAERS Safety Report 6405192-0 (Version None)
Quarter: 2009Q4

REPORT INFORMATION
  Report Type: 
  Country: None (occurrence: None)
  Receive Date: 20091019
  Receipt Date: 20091009
  Transmission Date: 20100525
  Serious: Yes (Other)
  Sender: FDA-Public Use
  Company Number: JP-AMGEN-US367647

PATIENT
  Sex: Female

DRUGS (9)
  1. ENBREL [Suspect]
     Indication: RHEUMATOID ARTHRITIS
     Route: 058
     Dates: start: 20090907, end: 20090907
  2. AZULFIDINE [Concomitant]
     Indication: RHEUMATOID ARTHRITIS
     Route: 048
     Dates: start: 20090121, end: 20090910
  3. LORCAM [Concomitant]
     Indication: RHEUMATOID ARTHRITIS
     Dosage: 2 DF/DAY
     Route: 048
     Dates: start: 20080722
  4. NEUROTROPIN [Concomitant]
     Indication: HYPOAESTHESIA
     Dosage: 2 DF/DAY
     Route: 048
  5. METHYCOBAL [Concomitant]
     Indication: HYPOAESTHESIA
     Dosage: 2DF/DAY
     Route: 048
     Dates: start: 20080225
  6. LIMAPROST [Concomitant]
     Indication: HYPOAESTHESIA
     Dosage: 2 DF/DAY
     Route: 048
  7. ALENDRONATE SODIUM [Concomitant]
     Indication: OSTEOPOROSIS PROPHYLAXIS
     Dosage: 1 DF/WEEK
     Route: 048
     Dates: start: 20090430
  8. PREDONINE [Concomitant]
     Indication: RHEUMATOID ARTHRITIS
     Route: 048
     Dates: start: 20070823
  9. SELBEX [Concomitant]
     Indication: PROPHYLAXIS AGAINST GASTROINTESTINAL ULCER
     Dosage: 2 DF/DAY
     Route: 048
     Dates: start: 20070718

REACTIONS (2)
  - DRUG ERUPTION [None]
  - OEDEMA [None]
